FAERS Safety Report 25095852 (Version 1)
Quarter: 2025Q1

REPORT INFORMATION
  Report Type: Spontaneous
  Country: DK (occurrence: DK)
  Receive Date: 20250319
  Receipt Date: 20250319
  Transmission Date: 20250408
  Serious: Yes (Death, Other)
  Sender: BRISTOL-MYERS SQUIBB COMPANY
  Company Number: None

PATIENT
  Age: 68 Year
  Sex: Male

DRUGS (2)
  1. YERVOY [Suspect]
     Active Substance: IPILIMUMAB
     Indication: Malignant melanoma
     Route: 042
     Dates: start: 20241126
  2. IOMERON [Concomitant]
     Active Substance: IOMEPROL
     Indication: Scan with contrast
     Dates: start: 20241107, end: 20250120

REACTIONS (2)
  - Glomerulonephritis acute [Unknown]
  - Pneumonia [Fatal]

NARRATIVE: CASE EVENT DATE: 20250101
